FAERS Safety Report 13021797 (Version 1)
Quarter: 2016Q4

REPORT INFORMATION
  Report Type: Spontaneous
  Country: GB (occurrence: GB)
  Receive Date: 20161213
  Receipt Date: 20161213
  Transmission Date: 20170207
  Serious: Yes (Hospitalization, Other)
  Sender: FDA-Public Use
  Company Number: GB-009507513-1612GBR004175

PATIENT
  Age: 34 Year
  Sex: Female
  Weight: 65 kg

DRUGS (1)
  1. NEXPLANON [Suspect]
     Active Substance: ETONOGESTREL
     Indication: CONTRACEPTION
     Route: 023
     Dates: start: 20160515, end: 20161010

REACTIONS (7)
  - Palpitations [Recovering/Resolving]
  - Hypertension [Recovering/Resolving]
  - Fatigue [Unknown]
  - Heart rate increased [Recovering/Resolving]
  - Panic attack [Recovering/Resolving]
  - Dyspnoea [Recovering/Resolving]
  - Dizziness [Unknown]

NARRATIVE: CASE EVENT DATE: 20160930
